FAERS Safety Report 4749085-3 (Version None)
Quarter: 2005Q3

REPORT INFORMATION
  Report Type: 
  Country: None (occurrence: None)
  Receive Date: 20050819
  Receipt Date: 20050518
  Transmission Date: 20060218
  Serious: Yes (Hospitalization)
  Sender: FDA-Public Use
  Company Number: JP-ROCHE-405180

PATIENT
  Age: 91 Year
  Sex: Male

DRUGS (7)
  1. ROCEPHIN [Suspect]
     Indication: PNEUMONIA
     Route: 041
     Dates: start: 20050427, end: 20050504
  2. LOXONIN [Concomitant]
     Route: 048
     Dates: start: 20050428, end: 20050429
  3. CYTOTEC [Concomitant]
     Route: 048
     Dates: start: 20050428, end: 20050429
  4. ASPIRIN [Concomitant]
     Route: 048
  5. HERBESSER [Concomitant]
     Route: 048
  6. RYTHMODAN [Concomitant]
     Route: 048
  7. DEPAS [Concomitant]
     Route: 048

REACTIONS (1)
  - PANCREATITIS [None]
